FAERS Safety Report 6313331-5 (Version None)
Quarter: 2009Q3

REPORT INFORMATION
  Report Type: 
  Country: None (occurrence: None)
  Receive Date: 20090818
  Receipt Date: 20090811
  Transmission Date: 20100115
  Serious: Yes (Other)
  Sender: FDA-Public Use
  Company Number: B0587674A

PATIENT
  Sex: Female

DRUGS (5)
  1. PAXIL [Suspect]
     Indication: DRUG USE FOR UNKNOWN INDICATION
     Dosage: 20MG PER DAY
     Route: 048
  2. PAXIL [Suspect]
     Dosage: 10MG PER DAY
     Route: 048
     Dates: end: 20090701
  3. MYSLEE [Concomitant]
     Route: 048
  4. WYPAX [Concomitant]
     Route: 048
  5. TRIAZOLAM [Concomitant]
     Route: 048

REACTIONS (1)
  - SYNCOPE [None]
